FAERS Safety Report 5119099-2 (Version None)
Quarter: 2006Q3

REPORT INFORMATION
  Report Type: 
  Country: None (occurrence: None)
  Receive Date: 20060925
  Receipt Date: 20060912
  Transmission Date: 20061208
  Serious: Yes (Other)
  Sender: FDA-Public Use
  Company Number: HQWYE225603JUN04

PATIENT
  Age: 31 Year
  Sex: Female

DRUGS (7)
  1. EFFEXOR [Suspect]
     Indication: DEPRESSION
     Dosage: 75 MG (FREQUENCY UNSPECIFIED); SEE IMAGE
     Dates: start: 20021101, end: 20021201
  2. EFFEXOR [Suspect]
     Indication: DEPRESSION
     Dosage: 75 MG (FREQUENCY UNSPECIFIED); SEE IMAGE
     Dates: start: 20030201, end: 20030101
  3. EFFEXOR [Suspect]
     Indication: DEPRESSION
     Dosage: 75 MG (FREQUENCY UNSPECIFIED); SEE IMAGE
     Dates: start: 20021201, end: 20030201
  4. EFFEXOR [Suspect]
     Indication: DEPRESSION
     Dosage: 75 MG (FREQUENCY UNSPECIFIED); SEE IMAGE
     Dates: start: 20030101, end: 20030901
  5. PAROXETINE HCL [Suspect]
     Dosage: 20 MG; SEE IMAGE
     Dates: end: 20031101
  6. PAROXETINE HCL [Suspect]
     Dosage: 20 MG; SEE IMAGE
     Dates: start: 20010101
  7. UNSPECIFIED THYROID MEDICATION (UNSPECIFIED THYROID MEDICATION) [Concomitant]

REACTIONS (15)
  - AGITATION [None]
  - AKATHISIA [None]
  - ANXIETY [None]
  - ASTHENIA [None]
  - CONDITION AGGRAVATED [None]
  - DRUG INEFFECTIVE [None]
  - FEELING ABNORMAL [None]
  - FEELING OF DESPAIR [None]
  - HOMICIDAL IDEATION [None]
  - PARTNER STRESS [None]
  - PHYSICAL ASSAULT [None]
  - SOMNOLENCE [None]
  - SUICIDAL IDEATION [None]
  - SUICIDE ATTEMPT [None]
  - UNEVALUABLE EVENT [None]
